FAERS Safety Report 9965441 (Version 1)
Quarter: 2014Q1

REPORT INFORMATION
  Report Type: Report from Study
  Country: US (occurrence: US)
  Receive Date: 20140305
  Receipt Date: 20140305
  Transmission Date: 20141002
  Serious: No
  Sender: FDA-Public Use
  Company Number: US-ABBVIE-13P-163-1126426-00

PATIENT
  Age: 43 Year
  Sex: Female

DRUGS (3)
  1. HUMIRA [Suspect]
     Indication: ANKYLOSING SPONDYLITIS
     Dates: start: 201212
  2. LEVOTHYROXINE [Concomitant]
     Indication: HORMONE REPLACEMENT THERAPY
     Dosage: 112 MCG DAILY
  3. ULTRAM [Concomitant]
     Indication: PAIN
     Dosage: AS NEEDED

REACTIONS (2)
  - Ocular icterus [Not Recovered/Not Resolved]
  - Musculoskeletal chest pain [Not Recovered/Not Resolved]
